FAERS Safety Report 9310351 (Version 1)
Quarter: 2013Q2

REPORT INFORMATION
  Report Type: Spontaneous
  Country: BR (occurrence: BR)
  Receive Date: 20130527
  Receipt Date: 20130527
  Transmission Date: 20140414
  Serious: Yes (Death)
  Sender: FDA-Public Use
  Company Number: BR-PFIZER INC-2013122078

PATIENT
  Age: 68 Year
  Sex: Female

DRUGS (3)
  1. SUTENT [Suspect]
     Indication: RENAL CELL CARCINOMA
     Dosage: 50 MG, CONTINUOUS CYCLE
     Route: 048
     Dates: start: 20130120
  2. SUTENT [Suspect]
     Dosage: 50 MG, CONTINUOUS
     Route: 048
     Dates: start: 20130308
  3. MYTEDON [Concomitant]
     Indication: PAIN

REACTIONS (4)
  - Death [Fatal]
  - Eye injury [Not Recovered/Not Resolved]
  - Skin disorder [Unknown]
  - Urticaria [Not Recovered/Not Resolved]
